FAERS Safety Report 14338039 (Version 3)
Quarter: 2018Q1

REPORT INFORMATION
  Report Type: Spontaneous
  Country: US (occurrence: US)
  Receive Date: 20171229
  Receipt Date: 20180109
  Transmission Date: 20180509
  Serious: Yes (Hospitalization)
  Sender: FDA-Public Use
  Company Number: US-PFIZER INC-2017555132

PATIENT
  Age: 17 Year
  Sex: Female

DRUGS (6)
  1. PSEUDOEPHEDRINE [Suspect]
     Active Substance: PSEUDOEPHEDRINE
     Dosage: UNK
     Route: 048
  2. ACETAMINOPHEN. [Concomitant]
     Active Substance: ACETAMINOPHEN
     Dosage: UNK
  3. COCAINE [Suspect]
     Active Substance: COCAINE
     Indication: DRUG ABUSE
     Dosage: UNK
     Route: 045
  4. SERTRALINE HCL [Suspect]
     Active Substance: SERTRALINE HYDROCHLORIDE
     Indication: DEPRESSION
     Dosage: UNK
     Route: 065
  5. BISOLTUSSIN [Suspect]
     Active Substance: DEXTROMETHORPHAN HYDROBROMIDE
     Indication: DRUG ABUSE
     Dosage: UNK (SEVERAL BOTTLES)
     Route: 048
  6. ASPIRIN. [Concomitant]
     Active Substance: ASPIRIN
     Dosage: UNK

REACTIONS (15)
  - Toxicity to various agents [Unknown]
  - Dyskinesia [Unknown]
  - Mydriasis [Unknown]
  - Drug abuse [Unknown]
  - Hypertonia [Unknown]
  - Agitation [Unknown]
  - Serotonin syndrome [Recovered/Resolved]
  - Hallucination [Unknown]
  - Disorientation [Unknown]
  - Sinus tachycardia [Recovered/Resolved]
  - Confusional state [Unknown]
  - Reflexes abnormal [Unknown]
  - Overdose [Recovered/Resolved]
  - Nystagmus [Unknown]
  - Clonus [Unknown]
